FAERS Safety Report 21565856 (Version 1)
Quarter: 2022Q4

REPORT INFORMATION
  Report Type: Spontaneous
  Country: US (occurrence: None)
  Receive Date: 20221107
  Receipt Date: 20221107
  Transmission Date: 20230112
  Serious: Yes (Other)
  Sender: FDA-Public Use
  Company Number: None

PATIENT
  Age: 52 Year
  Sex: Male
  Weight: 76.5 kg

DRUGS (4)
  1. NICORETTE [Suspect]
     Active Substance: NICOTINE
     Indication: Nicotine dependence
     Dosage: OTHER QUANTITY : 20 PIECES;?FREQUENCY : AS NEEDED;?OTHER ROUTE : CHEWED;?
     Route: 050
     Dates: start: 20221027, end: 20221027
  2. Gabapentin 400mg at night [Concomitant]
  3. Vitamin D 2000 IU a day [Concomitant]
  4. Indomethacin 50mg a day as needed [Concomitant]

REACTIONS (3)
  - Somnolence [None]
  - Anger [None]
  - Product quality issue [None]

NARRATIVE: CASE EVENT DATE: 20221027
